FAERS Safety Report 15549564 (Version 1)
Quarter: 2018Q4

REPORT INFORMATION
  Report Type: Spontaneous
  Country: JP (occurrence: JP)
  Receive Date: 20181025
  Receipt Date: 20181025
  Transmission Date: 20190205
  Serious: Yes (Other)
  Sender: FDA-Public Use
  Company Number: JP-TEVA-2018-JP-968784

PATIENT
  Age: 61 Year
  Sex: Female

DRUGS (2)
  1. CARBOPLATIN. [Suspect]
     Active Substance: CARBOPLATIN
     Indication: LUNG ADENOCARCINOMA STAGE IV
     Dosage: AUC = 5; EVERY 4 WEEKS FOR TWO CYCLES. RECEIVED AS A PART OF CONCURRENT CHEMORADIOTHERAPY.
     Route: 065
  2. PEMETREXED. [Suspect]
     Active Substance: PEMETREXED
     Indication: LUNG ADENOCARCINOMA STAGE IV
     Dosage: ON DAY 1 EVERY 4 WEEKS FOR TWO CYCLES. RECEIVED AS A PART OF CONCURRENT CHEMORADIOTHERAPY
     Route: 065

REACTIONS (7)
  - Neutropenia [Recovered/Resolved]
  - Decreased appetite [Recovered/Resolved]
  - Myalgia [Not Recovered/Not Resolved]
  - Anaemia [Recovered/Resolved]
  - Dermatitis [Recovered/Resolved]
  - Oesophagitis [Recovered/Resolved]
  - Thrombocytopenia [Recovered/Resolved]
